FAERS Safety Report 16078527 (Version 1)
Quarter: 2019Q1

REPORT INFORMATION
  Report Type: Spontaneous
  Country: ES (occurrence: ES)
  Receive Date: 20190315
  Receipt Date: 20190315
  Transmission Date: 20190418
  Serious: Yes (Other)
  Sender: FDA-Public Use
  Company Number: ES-AVERITAS PHARMA, INC.-2019-12370

PATIENT
  Age: 48 Year
  Sex: Female

DRUGS (8)
  1. QUTENZA [Suspect]
     Active Substance: CAPSAICIN
     Indication: NEURALGIA
     Dosage: 3 DF, UNK
     Route: 003
     Dates: start: 201604, end: 201604
  2. QUTENZA [Suspect]
     Active Substance: CAPSAICIN
     Dosage: 3 DF, UNK
     Route: 003
     Dates: start: 201810, end: 201810
  3. QUTENZA [Suspect]
     Active Substance: CAPSAICIN
     Dosage: 2 DF, UNK
     Route: 003
     Dates: start: 201705, end: 201705
  4. FENTANYL. [Concomitant]
     Active Substance: FENTANYL
     Indication: PAIN
     Dosage: 100 MCG, AS NEEDED
     Route: 060
     Dates: start: 201603, end: 201604
  5. AMITRIPTYLINE [Concomitant]
     Active Substance: AMITRIPTYLINE
     Indication: PRODUCT USED FOR UNKNOWN INDICATION
     Dosage: 25 MG, 1/DAY
  6. QUTENZA [Suspect]
     Active Substance: CAPSAICIN
     Dosage: 2 DF, UNK
     Dates: start: 201806
  7. ZALDIAR [Suspect]
     Active Substance: ACETAMINOPHEN\TRAMADOL HYDROCHLORIDE
     Indication: PRODUCT USED FOR UNKNOWN INDICATION
     Dosage: 1 DF, EVERY 12 HRS
     Route: 048
     Dates: start: 201603, end: 201604
  8. DULOXETIN [Concomitant]
     Active Substance: DULOXETINE
     Indication: NEURALGIA
     Dosage: 60 MG, 1/DAY
     Dates: start: 201603

REACTIONS (9)
  - Herpes zoster [Recovered/Resolved]
  - Application site erythema [Recovered/Resolved]
  - Application site pain [Recovered/Resolved]
  - Application site pain [Recovered/Resolved]
  - Vomiting [Recovered/Resolved]
  - Application site pain [Recovered/Resolved]
  - Nausea [Recovered/Resolved]
  - Abdominal pain upper [Recovered/Resolved]
  - Application site erythema [Recovered/Resolved]

NARRATIVE: CASE EVENT DATE: 201604
